FAERS Safety Report 8082690-8 (Version None)
Quarter: 2012Q1

REPORT INFORMATION
  Report Type: 
  Country: None (occurrence: None)
  Receive Date: 20120127
  Receipt Date: 20110301
  Transmission Date: 20120608
  Serious: No
  Sender: FDA-Public Use
  Company Number: US-ABBOTT-11P-163-0708343-00

PATIENT
  Age: 51 Year
  Sex: Female

DRUGS (7)
  1. LEXAPRO [Concomitant]
     Indication: DEPRESSION
  2. XANAX [Concomitant]
     Indication: ANXIETY
     Dosage: AS NEEDED  AS NEEDED
  3. TOPROL-XL [Concomitant]
     Indication: HYPERTENSION
  4. ESTRADIOL [Concomitant]
     Indication: HORMONE REPLACEMENT THERAPY
  5. DURAGESIC-100 [Concomitant]
     Indication: PAIN
     Dosage: FENTANYL; 1 EVERY 3 DAYS
  6. HUMIRA [Suspect]
     Indication: PSORIATIC ARTHROPATHY
     Dates: start: 20101101, end: 20110203
  7. AMITRIPTYLINE HCL [Concomitant]
     Indication: INSOMNIA
     Dosage: AT HOUR OF SLEEP

REACTIONS (7)
  - UPPER RESPIRATORY TRACT INFECTION [None]
  - JOINT SWELLING [None]
  - DYSPNOEA [None]
  - MOBILITY DECREASED [None]
  - CHEST PAIN [None]
  - PSORIASIS [None]
  - OEDEMA PERIPHERAL [None]
